FAERS Safety Report 7337275-5 (Version None)
Quarter: 2011Q1

REPORT INFORMATION
  Report Type: 
  Country: None (occurrence: None)
  Receive Date: 20110308
  Receipt Date: 20110303
  Transmission Date: 20110831
  Serious: Yes (Death, Hospitalization, Other)
  Sender: FDA-Public Use
  Company Number: US-ASTELLAS-2011US000268

PATIENT

DRUGS (14)
  1. PREDNISONE [Concomitant]
     Indication: PRODUCT USED FOR UNKNOWN INDICATION
     Dosage: 5 MG, UID/QD
     Route: 065
  2. LIPITOR [Suspect]
     Indication: PRODUCT USED FOR UNKNOWN INDICATION
     Dosage: 20 MG, UID/QD
     Route: 065
  3. LIPITOR [Suspect]
     Dosage: 10 MG, UID/QD
     Route: 065
  4. CELLCEPT [Concomitant]
     Indication: PRODUCT USED FOR UNKNOWN INDICATION
     Dosage: 500 MG, BID
     Route: 065
  5. PHOSLO [Concomitant]
     Indication: PRODUCT USED FOR UNKNOWN INDICATION
     Dosage: 2 DF, TID WITH MEALS
     Route: 065
  6. PREDNISONE [Concomitant]
     Dosage: 10 MG, UID/QD
     Route: 065
  7. CELEXA [Concomitant]
     Indication: DEPRESSION
     Dosage: 40 MG, UID/QD
     Route: 065
  8. PROGRAF [Suspect]
     Dosage: 3 MG, BID
     Route: 048
  9. PROGRAF [Suspect]
     Dosage: 2 MG, BID
     Route: 048
     Dates: end: 20100701
  10. LANTUS [Concomitant]
     Indication: PRODUCT USED FOR UNKNOWN INDICATION
     Dosage: 10 U, BID
     Route: 058
  11. HUMALOG [Concomitant]
     Indication: PRODUCT USED FOR UNKNOWN INDICATION
     Dosage: SLIDING SCALE
     Route: 065
  12. PROGRAF [Suspect]
     Indication: RENAL TRANSPLANT
     Dosage: 8 MG, BID
     Route: 048
     Dates: start: 19981119
  13. NITROSTAT [Concomitant]
     Indication: CHEST PAIN
     Dosage: 0.4 MG, PRN
     Route: 065
  14. AMBIEN [Concomitant]
     Indication: PRODUCT USED FOR UNKNOWN INDICATION
     Dosage: 10 MG HS PRN
     Route: 065

REACTIONS (19)
  - GLOMERULOSCLEROSIS [None]
  - INFLUENZA [None]
  - HYPERTENSION [None]
  - GASTRITIS [None]
  - SKIN CANCER [None]
  - OEDEMA [None]
  - MYOCARDIAL ISCHAEMIA [None]
  - RENAL FAILURE [None]
  - CHOLECYSTITIS CHRONIC [None]
  - CHRONIC ALLOGRAFT NEPHROPATHY [None]
  - PNEUMONIA [None]
  - HELICOBACTER INFECTION [None]
  - NECK PAIN [None]
  - POLYCYTHAEMIA [None]
  - TREATMENT NONCOMPLIANCE [None]
  - NEUROMYOPATHY [None]
  - SEPSIS [None]
  - IMMUNOSUPPRESSANT DRUG LEVEL DECREASED [None]
  - LIVER FUNCTION TEST ABNORMAL [None]
